FAERS Safety Report 16728278 (Version 1)
Quarter: 2019Q3

REPORT INFORMATION
  Report Type: Spontaneous
  Country: CA (occurrence: CA)
  Receive Date: 20190822
  Receipt Date: 20190822
  Transmission Date: 20191005
  Serious: Yes (Life-Threatening, Hospitalization)
  Sender: FDA-Public Use
  Company Number: CA-TEVA-2019-CA-1095467

PATIENT
  Age: 16 Year
  Sex: Female
  Weight: 52 kg

DRUGS (13)
  1. CHLORHEXIDINE [Concomitant]
     Active Substance: CHLORHEXIDINE
  2. SCOPOLAMINE [Concomitant]
     Active Substance: SCOPOLAMINE
  3. METHOTREXATE INJECTION, USP [Suspect]
     Active Substance: METHOTREXATE
     Route: 042
  4. METHOTREXATE INJECTION, USP [Suspect]
     Active Substance: METHOTREXATE
     Route: 042
  5. GRAVOL [Concomitant]
     Active Substance: DIMENHYDRINATE
  6. PEG 3350 [Concomitant]
     Active Substance: POLYETHYLENE GLYCOL 3350
  7. TYLENOL [Concomitant]
     Active Substance: ACETAMINOPHEN
  8. NABILONE [Concomitant]
     Active Substance: NABILONE
  9. ZOFRAN [Concomitant]
     Active Substance: ONDANSETRON HYDROCHLORIDE
  10. 6-MERCAPTOPURINE [Concomitant]
     Active Substance: MERCAPTOPURINE
  11. METHOTREXATE INJECTION, USP [Suspect]
     Active Substance: METHOTREXATE
     Indication: B-CELL TYPE ACUTE LEUKAEMIA
     Route: 042
  12. AERIUS [Concomitant]
  13. GLEEVEC [Suspect]
     Active Substance: IMATINIB MESYLATE
     Indication: B-CELL TYPE ACUTE LEUKAEMIA
     Dosage: 400 MILLIGRAM DAILY;
     Route: 048

REACTIONS (1)
  - Colitis [Recovered/Resolved]
